FAERS Safety Report 10903491 (Version 1)
Quarter: 2015Q1

REPORT INFORMATION
  Report Type: Report from Study
  Country: US (occurrence: US)
  Receive Date: 20150311
  Receipt Date: 20150311
  Transmission Date: 20150721
  Serious: Yes (Hospitalization, Other)
  Sender: FDA-Public Use
  Company Number: US-BIOGENIDEC-2015BI030250

PATIENT
  Sex: Male

DRUGS (1)
  1. TYSABRI [Suspect]
     Active Substance: NATALIZUMAB
     Indication: MULTIPLE SCLEROSIS
     Route: 042
     Dates: start: 20141231

REACTIONS (6)
  - Myocardial infarction [Recovered/Resolved]
  - Loss of control of legs [Recovered/Resolved]
  - Rash papular [Recovered/Resolved]
  - Disturbance in attention [Not Recovered/Not Resolved]
  - Cardiac operation [Recovered/Resolved]
  - Depression [Not Recovered/Not Resolved]
